FAERS Safety Report 8341543-8 (Version None)
Quarter: 2012Q2

REPORT INFORMATION
  Report Type: 
  Country: None (occurrence: None)
  Receive Date: 20120507
  Receipt Date: 20100308
  Transmission Date: 20120825
  Serious: No
  Sender: FDA-Public Use
  Company Number: US-TEVA-2010001450

PATIENT

DRUGS (2)
  1. TREANDA [Suspect]
     Route: 042
  2. RITUXAN [Concomitant]

REACTIONS (3)
  - INFUSION SITE PAIN [None]
  - INFUSION SITE IRRITATION [None]
  - LIMB DISCOMFORT [None]
